FAERS Safety Report 23699271 (Version 1)
Quarter: 2024Q2

REPORT INFORMATION
  Report Type: Spontaneous
  Country: US (occurrence: US)
  Receive Date: 20240402
  Receipt Date: 20240402
  Transmission Date: 20240716
  Serious: No
  Sender: FDA-Public Use
  Company Number: US-GLAND PHARMA LIMITED-2023US002875

PATIENT
  Sex: Male

DRUGS (2)
  1. BROMFENAC [Suspect]
     Active Substance: BROMFENAC SODIUM
     Indication: Eye swelling
     Dosage: 1 DROP IN EACH EYE DAILY
     Route: 047
  2. BROMFENAC [Suspect]
     Active Substance: BROMFENAC SODIUM
     Indication: Intraocular pressure increased

REACTIONS (4)
  - Product dose omission issue [Unknown]
  - Product packaging quantity issue [Unknown]
  - Product container seal issue [Unknown]
  - Product packaging quantity issue [Unknown]
